FAERS Safety Report 10267701 (Version 1)
Quarter: 2014Q2

REPORT INFORMATION
  Report Type: Spontaneous
  Country: US (occurrence: US)
  Receive Date: 20140630
  Receipt Date: 20140630
  Transmission Date: 20141212
  Serious: Yes (Hospitalization, Other)
  Sender: FDA-Public Use
  Company Number: US-ABBVIE-14P-163-1252785-00

PATIENT
  Sex: Female
  Weight: 42.68 kg

DRUGS (15)
  1. CREON [Suspect]
     Indication: DYSPEPSIA
     Dosage: WITH MEALS AND SNACKS
     Dates: end: 2014
  2. CREON [Suspect]
     Dosage: WITH MEALS AND SNACKS
     Dates: start: 2014
  3. DOMPERIDONE [Concomitant]
     Indication: DYSPEPSIA
  4. EVAMIST [Concomitant]
     Indication: PRODUCT USED FOR UNKNOWN INDICATION
  5. HYDROCODONE [Concomitant]
     Indication: ARTHRALGIA
  6. ONDANSETRON [Concomitant]
     Indication: NAUSEA
  7. SIMVASTATIN [Concomitant]
     Indication: BLOOD CHOLESTEROL INCREASED
  8. LORAZEPAM [Concomitant]
     Indication: ANXIETY
  9. TRAZODONE [Concomitant]
     Indication: INSOMNIA
  10. AMITRIPTYLINE [Concomitant]
     Indication: ANXIETY
  11. OMEPRAZOLE [Concomitant]
     Indication: ULCER
  12. VITAMIN D [Concomitant]
     Indication: VITAMIN SUPPLEMENTATION
  13. VITAMIN B [Concomitant]
     Indication: BREAST INFLAMMATION
  14. ASPIRIN LOW [Concomitant]
     Indication: CARDIAC DISORDER
  15. TOPIRAMATE [Concomitant]
     Indication: MIGRAINE

REACTIONS (4)
  - Malaise [Recovered/Resolved]
  - Gastric disorder [Recovered/Resolved]
  - Cerebrovascular disorder [Not Recovered/Not Resolved]
  - Headache [Recovered/Resolved]
